FAERS Safety Report 8209333-4 (Version None)
Quarter: 2012Q1

REPORT INFORMATION
  Report Type: 
  Country: None (occurrence: None)
  Receive Date: 20120314
  Receipt Date: 20120304
  Transmission Date: 20120608
  Serious: No
  Sender: FDA-Public Use
  Company Number: US-BAYER-2012-022984

PATIENT
  Age: 32 Year
  Sex: Male
  Weight: 86 kg

DRUGS (1)
  1. NAPROXEN (ALEVE) [Suspect]
     Indication: TOOTHACHE
     Dosage: 5 DF (TABLETS) WITHIN ONE HOUR
     Route: 048
     Dates: start: 20120304

REACTIONS (4)
  - CHEST PAIN [None]
  - FEELING HOT [None]
  - OROPHARYNGEAL PAIN [None]
  - PAIN IN EXTREMITY [None]
